FAERS Safety Report 5069670-1 (Version None)
Quarter: 2006Q3

REPORT INFORMATION
  Report Type: 
  Country: None (occurrence: None)
  Receive Date: 20060714
  Receipt Date: 20060404
  Transmission Date: 20061208
  Serious: No
  Sender: FDA-Public Use
  Company Number: 2006SP001572

PATIENT
  Age: 68 Year
  Sex: Female

DRUGS (8)
  1. LUNESTA [Suspect]
     Indication: INSOMNIA
     Dosage: 2 MG;HS;ORAL
     Route: 048
     Dates: start: 20050101
  2. SEREVENT [Concomitant]
  3. AZMACORT [Concomitant]
  4. SINGULAIR [Concomitant]
  5. DICLOFENAC SODIUM [Concomitant]
  6. HYDROCHLOROTHIAZIDE [Concomitant]
  7. OXYBUTYNIN [Concomitant]
  8. PRILOSEC [Concomitant]

REACTIONS (1)
  - PRURITUS [None]
